FAERS Safety Report 6075134-9 (Version None)
Quarter: 2009Q1

REPORT INFORMATION
  Report Type: 
  Country: None (occurrence: None)
  Receive Date: 20090212
  Receipt Date: 20090130
  Transmission Date: 20090719
  Serious: Yes (Hospitalization)
  Sender: FDA-Public Use
  Company Number: US-BIOGENIDEC-2009BI003651

PATIENT
  Age: 61 Year
  Sex: Female
  Weight: 78 kg

DRUGS (10)
  1. TYSABRI [Suspect]
     Indication: MULTIPLE SCLEROSIS
     Route: 042
     Dates: start: 20070706
  2. MIRAPEX [Concomitant]
     Indication: RESTLESS LEGS SYNDROME
  3. LIDODERM [Concomitant]
     Indication: DRUG USE FOR UNKNOWN INDICATION
  4. ATIVAN [Concomitant]
     Indication: ANXIETY
  5. TOPAMAX [Concomitant]
     Indication: DRUG USE FOR UNKNOWN INDICATION
  6. PROVIGIL [Concomitant]
     Indication: FATIGUE
  7. SYNTHROID [Concomitant]
     Indication: HYPOTHYROIDISM
  8. MORPHINE [Concomitant]
     Indication: DRUG USE FOR UNKNOWN INDICATION
  9. VITAMIN B-12 [Concomitant]
     Indication: DRUG USE FOR UNKNOWN INDICATION
  10. BELLADONNA [Concomitant]
     Indication: ABDOMINAL PAIN

REACTIONS (8)
  - ARTHRITIS [None]
  - HYPOTHYROIDISM [None]
  - MULTIPLE SCLEROSIS [None]
  - MULTIPLE SCLEROSIS RELAPSE [None]
  - OPTIC NEURITIS [None]
  - TRANSIENT ACANTHOLYTIC DERMATOSIS [None]
  - URINARY TRACT INFECTION [None]
  - WEIGHT DECREASED [None]
